FAERS Safety Report 7021514-4 (Version None)
Quarter: 2010Q3

REPORT INFORMATION
  Report Type: 
  Country: None (occurrence: None)
  Receive Date: 20100928
  Receipt Date: 20100914
  Transmission Date: 20110219
  Serious: Yes (Hospitalization)
  Sender: FDA-Public Use
  Company Number: SPI201000237

PATIENT
  Age: 31 Year
  Sex: Male

DRUGS (6)
  1. AMITIZA [Suspect]
     Indication: CONSTIPATION
     Dosage: 24 MCG, BID, ORAL
     Route: 048
     Dates: start: 20100101, end: 20100904
  2. PREVACID [Concomitant]
  3. MULTIVITAMIN [Concomitant]
  4. EXTRA STRENGTH TYLENOL [Concomitant]
  5. MIRALAX [Concomitant]
  6. BENADRYL [Concomitant]

REACTIONS (1)
  - CELLULITIS [None]
